FAERS Safety Report 4353976-5 (Version None)
Quarter: 2004Q2

REPORT INFORMATION
  Report Type: 
  Country: None (occurrence: None)
  Receive Date: 20040506
  Receipt Date: 20040303
  Transmission Date: 20050107
  Serious: No
  Sender: FDA-Public Use
  Company Number: US-GLAXOSMITHKLINE-A0501045A

PATIENT
  Age: 75 Year
  Sex: Female

DRUGS (9)
  1. AVANDAMET [Suspect]
     Dosage: 1TAB TWICE PER DAY
     Route: 048
  2. AVALIDE [Concomitant]
  3. ATENOLOL [Concomitant]
  4. LIPITOR [Concomitant]
  5. CALTRATE [Concomitant]
  6. NEURONTIN [Concomitant]
  7. ASPIRIN [Concomitant]
  8. CALTRATE [Concomitant]
  9. INSULIN [Concomitant]

REACTIONS (3)
  - FATIGUE [None]
  - HYPERGLYCAEMIA [None]
  - SWELLING [None]
